FAERS Safety Report 7755213-8 (Version None)
Quarter: 2011Q3

REPORT INFORMATION
  Report Type: 
  Country: None (occurrence: None)
  Receive Date: 20110914
  Receipt Date: 20110901
  Transmission Date: 20111222
  Serious: Yes (Death, Life-Threatening, Hospitalization)
  Sender: FDA-Public Use
  Company Number: THQ2011A05422

PATIENT
  Age: 64 Year
  Sex: Female

DRUGS (9)
  1. PLACEBO [Suspect]
     Indication: TYPE 2 DIABETES MELLITUS
     Dosage: PER ORAL
     Route: 048
     Dates: start: 20101227, end: 20110524
  2. PLACEBO [Suspect]
     Indication: RENAL IMPAIRMENT
     Dosage: PER ORAL
     Route: 048
     Dates: start: 20101227, end: 20110524
  3. ASPIRIN [Concomitant]
  4. SIMVASTATIN [Concomitant]
  5. CLOPIDOGREL [Concomitant]
  6. ATENOLOL/CHLORTHALIDONE (CHLORTHALIDONE, ATENOLOL) [Concomitant]
  7. PIOGLITAZONE HYDROCHLORIDE (AS COMPARATOR) (PIOGLITAZONE HYDROCHLORIDE [Suspect]
     Indication: TYPE 2 DIABETES MELLITUS
     Dosage: PER ORAL
     Route: 048
     Dates: start: 20101227, end: 20110524
  8. PIOGLITAZONE HYDROCHLORIDE (AS COMPARATOR) (PIOGLITAZONE HYDROCHLORIDE [Suspect]
     Indication: RENAL IMPAIRMENT
     Dosage: PER ORAL
     Route: 048
     Dates: start: 20101227, end: 20110524
  9. GLIMEPIRIDE [Concomitant]

REACTIONS (8)
  - CONDITION AGGRAVATED [None]
  - MYOCARDIAL INFARCTION [None]
  - POST PROCEDURAL HAEMATOMA [None]
  - CEREBROVASCULAR ACCIDENT [None]
  - CORONARY ARTERY STENOSIS [None]
  - RETROPERITONEAL HAEMORRHAGE [None]
  - SHOCK [None]
  - NEPHROPATHY [None]
